FAERS Safety Report 9016832 (Version 1)
Quarter: 2013Q1

REPORT INFORMATION
  Report Type: Report from Study
  Country: CA (occurrence: CA)
  Receive Date: 20130117
  Receipt Date: 20130117
  Transmission Date: 20140127
  Serious: Yes (Other)
  Sender: FDA-Public Use
  Company Number: CA-JNJFOC-20130105373

PATIENT
  Sex: Male
  Weight: 83.92 kg

DRUGS (13)
  1. REMICADE [Suspect]
     Indication: RHEUMATOID ARTHRITIS
     Route: 042
     Dates: start: 20080711
  2. SYNTHROID [Concomitant]
     Route: 048
  3. ASAPHEN [Concomitant]
     Route: 048
  4. VALSARTAN [Concomitant]
     Route: 048
  5. LANZOPRAZOLE [Concomitant]
     Route: 048
  6. SIMVASTATIN [Concomitant]
     Route: 048
  7. FOLIC ACID [Concomitant]
     Route: 048
  8. ACTONEL [Concomitant]
     Route: 048
  9. B12 [Concomitant]
     Route: 065
  10. CALCIUM W/ VITAMIN D [Concomitant]
     Dosage: CALCIUM 500 MG/VIT D 400 MG
     Route: 065
  11. BISOPROLOL [Concomitant]
     Route: 048
  12. METHOTREXATE [Concomitant]
     Dosage: 2.5 MG X 8 TABLETS ONCE WEEKLY
     Route: 065
  13. PREDNISONE [Concomitant]
     Indication: ARTHRITIS
     Dosage: USED OCCASIONALLY
     Route: 065

REACTIONS (2)
  - Nephrolithiasis [Recovered/Resolved]
  - Constipation [Unknown]
